FAERS Safety Report 9115574 (Version 1)
Quarter: 2013Q1

REPORT INFORMATION
  Report Type: Spontaneous
  Country: DK (occurrence: None)
  Receive Date: 20130129
  Receipt Date: 20130129
  Transmission Date: 20140127
  Serious: Yes (Other)
  Sender: FDA-Public Use
  Company Number: 2013MA000711

PATIENT
  Age: 85 Year
  Sex: Male

DRUGS (7)
  1. TRAMADOL HYDROCHLORIDE TABLETS, 50 MG (PUREPAC) (TRAMADOL) [Suspect]
     Indication: PAIN
     Route: 048
  2. OMEPRAZOLE [Concomitant]
  3. BUTRANS [Concomitant]
  4. PENTAZOCINE [Concomitant]
  5. ACETYLSALICYLIC ACID [Concomitant]
  6. RAMIPRIL [Concomitant]
  7. FINASTERIDE [Concomitant]

REACTIONS (1)
  - Lymphocyte count decreased [None]
